FAERS Safety Report 19073628 (Version 1)
Quarter: 2021Q1

REPORT INFORMATION
  Report Type: Spontaneous
  Country: US (occurrence: US)
  Receive Date: 20210330
  Receipt Date: 20210330
  Transmission Date: 20210420
  Serious: No
  Sender: FDA-Public Use
  Company Number: US-EMD SERONO-9225351

PATIENT
  Age: 39 Year
  Sex: Female

DRUGS (2)
  1. MAVENCLAD [Suspect]
     Active Substance: CLADRIBINE
     Indication: MULTIPLE SCLEROSIS
     Dosage: YEAR ONE CYCLE ONE THERAPY (TOTAL 60 MG)
     Route: 048
     Dates: start: 20210223, end: 202102
  2. CORTISONE [Suspect]
     Active Substance: CORTISONE
     Indication: BACK PAIN
     Dosage: 3 INJECTIONS GIVEN.
     Dates: start: 202102

REACTIONS (2)
  - Increased appetite [Recovered/Resolved]
  - Nausea [Unknown]

NARRATIVE: CASE EVENT DATE: 202102
